FAERS Safety Report 20745327 (Version 1)
Quarter: 2022Q2

REPORT INFORMATION
  Report Type: Spontaneous
  Country: FR (occurrence: FR)
  Receive Date: 20220425
  Receipt Date: 20220425
  Transmission Date: 20220721
  Serious: Yes (Hospitalization)
  Sender: FDA-Public Use
  Company Number: None

PATIENT
  Age: 47 Year
  Sex: Male

DRUGS (30)
  1. DIAZEPAM [Suspect]
     Active Substance: DIAZEPAM
     Indication: Schizophrenia
     Dosage: 120 GOUTTES PAR JOUR
     Route: 050
     Dates: start: 20220216
  2. DIAZEPAM [Suspect]
     Active Substance: DIAZEPAM
     Dosage: 90 GOUTTES PAR JOUR
     Route: 050
     Dates: start: 20220104, end: 20220215
  3. CHLORPROMAZINE [Suspect]
     Active Substance: CHLORPROMAZINE
     Indication: Schizophrenia
     Dosage: 650 MG/J
     Route: 050
     Dates: start: 20220114
  4. LOXAPINE SUCCINATE [Suspect]
     Active Substance: LOXAPINE SUCCINATE
     Indication: Schizophrenia
     Dosage: 600 MG PAR JOUR
     Route: 050
     Dates: start: 20220104, end: 20220114
  5. LOXAPINE SUCCINATE [Suspect]
     Active Substance: LOXAPINE SUCCINATE
     Dosage: 750 MG PAR JOUR
     Route: 050
     Dates: start: 20220117
  6. HALOPERIDOL [Suspect]
     Active Substance: HALOPERIDOL
     Indication: Schizophrenia
     Dosage: 20 MG/J
     Route: 050
     Dates: start: 20220114, end: 20220119
  7. HALOPERIDOL [Suspect]
     Active Substance: HALOPERIDOL
     Dosage: 45 MG/J
     Route: 050
     Dates: start: 20220130
  8. VALPROATE SODIUM [Suspect]
     Active Substance: VALPROATE SODIUM
     Indication: Schizophrenia
     Dosage: 2000 MG/J
     Route: 050
     Dates: start: 20220104, end: 20220131
  9. VALPROATE SODIUM [Suspect]
     Active Substance: VALPROATE SODIUM
     Dosage: 1000 MG/J
     Route: 050
     Dates: start: 20220201
  10. ATROPINE [Suspect]
     Active Substance: ATROPINE
     Indication: Salivary hypersecretion
     Dosage: 2 GOUTTES PAR JOUR
     Route: 050
     Dates: start: 20220221
  11. OLANZAPINE [Suspect]
     Active Substance: OLANZAPINE
     Indication: Schizophrenia
     Dosage: 30 MG/J
     Route: 050
     Dates: start: 20220104, end: 20220107
  12. OLANZAPINE [Suspect]
     Active Substance: OLANZAPINE
     Dosage: 20 MG/J
     Route: 050
     Dates: start: 20220208, end: 20220215
  13. OLANZAPINE [Suspect]
     Active Substance: OLANZAPINE
     Dosage: 40 MG/J
     Route: 050
     Dates: start: 20220114, end: 20220118
  14. OLANZAPINE [Suspect]
     Active Substance: OLANZAPINE
     Dosage: 45 MG/J
     Route: 050
     Dates: start: 20220119, end: 20220201
  15. OLANZAPINE [Suspect]
     Active Substance: OLANZAPINE
     Dosage: 30 MG/J
     Route: 050
     Dates: start: 20220202, end: 20220207
  16. LITHIUM [Suspect]
     Active Substance: LITHIUM
     Indication: Schizophrenia
     Dosage: 600 MG/J
     Route: 050
     Dates: start: 20220118, end: 20220130
  17. LITHIUM [Suspect]
     Active Substance: LITHIUM
     Dosage: 800 MG/J
     Route: 050
     Dates: start: 20220131
  18. LITHIUM [Suspect]
     Active Substance: LITHIUM
     Dosage: 400 MG/J
     Route: 050
     Dates: start: 20220114, end: 20220117
  19. CLOZAPINE [Suspect]
     Active Substance: CLOZAPINE
     Indication: Schizophrenia
     Dosage: 100 MG/J
     Route: 050
     Dates: start: 20220208, end: 20220209
  20. CLOZAPINE [Suspect]
     Active Substance: CLOZAPINE
     Dosage: 150 MG/J
     Route: 050
     Dates: start: 20220215, end: 20220216
  21. CLOZAPINE [Suspect]
     Active Substance: CLOZAPINE
     Dosage: 200 MG/J
     Route: 050
     Dates: start: 20220218, end: 20220221
  22. CLOZAPINE [Suspect]
     Active Substance: CLOZAPINE
     Dosage: 175 MG/J
     Route: 050
     Dates: start: 20220217, end: 20220217
  23. CLOZAPINE [Suspect]
     Active Substance: CLOZAPINE
     Dosage: 300 MG/J
     Route: 050
     Dates: start: 20220227
  24. CLOZAPINE [Suspect]
     Active Substance: CLOZAPINE
     Dosage: 75 MG/J
     Route: 050
     Dates: start: 20220205, end: 20220207
  25. CLOZAPINE [Suspect]
     Active Substance: CLOZAPINE
     Dosage: 125 MG/J
     Route: 050
     Dates: start: 20220210, end: 20220211
  26. CLOZAPINE [Suspect]
     Active Substance: CLOZAPINE
     Dosage: 25 MG/J
     Route: 050
     Dates: start: 20220201, end: 20220202
  27. CLOZAPINE [Suspect]
     Active Substance: CLOZAPINE
     Dosage: 50 MG/J
     Route: 050
     Dates: start: 20220203, end: 20220204
  28. CLOZAPINE [Suspect]
     Active Substance: CLOZAPINE
     Dosage: 250 MG/J
     Route: 050
     Dates: start: 20220224, end: 20220224
  29. POLYETHYLENE GLYCOLS [Concomitant]
     Active Substance: POLYETHYLENE GLYCOLS
     Indication: Constipation
     Dosage: 2 SACHETS PAR JOUR
     Route: 050
     Dates: start: 20220104
  30. LOVENOX [Concomitant]
     Active Substance: ENOXAPARIN SODIUM
     Indication: Product used for unknown indication
     Dosage: 2 SACHETS PAR JOUR
     Route: 050
     Dates: start: 20220104

REACTIONS (3)
  - Faecaloma [Recovering/Resolving]
  - Peritonitis [Recovering/Resolving]
  - Intestinal obstruction [Recovering/Resolving]

NARRATIVE: CASE EVENT DATE: 20220201
